FAERS Safety Report 5948426-9 (Version None)
Quarter: 2008Q4

REPORT INFORMATION
  Report Type: 
  Country: None (occurrence: None)
  Receive Date: 20081111
  Receipt Date: 20081107
  Transmission Date: 20090506
  Serious: Yes (Hospitalization)
  Sender: FDA-Public Use
  Company Number: US-BRISTOL-MYERS SQUIBB COMPANY-14347884

PATIENT
  Age: 74 Year
  Sex: Female
  Weight: 81 kg

DRUGS (24)
  1. COUMADIN [Suspect]
     Dosage: 1 DOSAGE FORM: 1/2 TABLET QD AND 2.5MG ON THURSDAY SINCE 23-MAR-2008
     Route: 048
     Dates: start: 20080323
  2. PLAVIX [Suspect]
     Indication: CORONARY ARTERY DISEASE
     Route: 048
     Dates: start: 20070201
  3. PLAVIX [Suspect]
     Indication: CORONARY ARTERY BYPASS
     Route: 048
     Dates: start: 20070201
  4. PLAVIX [Suspect]
     Indication: STENT PLACEMENT
     Route: 048
     Dates: start: 20070201
  5. PLAVIX [Suspect]
     Indication: MYOCARDIAL INFARCTION
     Route: 048
     Dates: start: 20070201
  6. DETROL LA [Concomitant]
     Route: 065
     Dates: start: 19830101
  7. ASPIRIN [Concomitant]
     Route: 065
     Dates: start: 19880101
  8. ZETIA [Concomitant]
     Dosage: 4-5YEARS
     Route: 065
  9. PACERONE [Concomitant]
     Route: 065
     Dates: start: 20080301
  10. ATENOLOL [Concomitant]
     Dosage: 7-9YEARS
     Route: 065
  11. MICARDIS [Concomitant]
     Dosage: 1 AND 1/2 - 2YR
     Route: 065
  12. PREVACID [Concomitant]
     Dosage: MANY YEARS
     Route: 065
  13. NABUMETONE [Concomitant]
     Route: 065
     Dates: start: 19880101
  14. ISOSORBIDE MONONITRATE [Concomitant]
     Dosage: ER.TAKEN FROM AN UNK DATE- DISCONTD;BEGUN AGAIN IN JUN08
     Route: 065
     Dates: start: 20080601
  15. FUROSEMIDE [Concomitant]
     Route: 065
     Dates: start: 19850101, end: 20080301
  16. WELCHOL [Concomitant]
     Dosage: 4-5YR.
     Route: 065
  17. SIMVASTATIN [Concomitant]
     Route: 065
     Dates: start: 20030101
  18. CALCIUM [Concomitant]
     Route: 065
  19. OSTEO BI-FLEX [Concomitant]
     Dosage: 1DF=1TAB.
  20. GARLIC [Concomitant]
     Dosage: FORMULATION: TAB. 5-6YR.
     Route: 065
  21. POTASSIUM CHLORIDE [Concomitant]
     Route: 065
  22. ANTIBIOTICS [Concomitant]
     Dates: start: 20080101
  23. DILTIAZEM HCL [Concomitant]
     Route: 065
     Dates: end: 20080301
  24. VITAMINS [Concomitant]
     Dosage: 2 DOSAGE FORM=2 TABS
     Route: 065
     Dates: start: 20040101

REACTIONS (4)
  - CARDIAC FAILURE CONGESTIVE [None]
  - DIZZINESS [None]
  - HAEMORRHAGE [None]
  - PULMONARY OEDEMA [None]
